FAERS Safety Report 8019121-X (Version None)
Quarter: 2012Q1

REPORT INFORMATION
  Report Type: 
  Country: None (occurrence: None)
  Receive Date: 20120103
  Receipt Date: 20111223
  Transmission Date: 20120608
  Serious: Yes (Other)
  Sender: FDA-Public Use
  Company Number: US-PERRIGO-11US011303

PATIENT
  Sex: Male
  Weight: 99.773 kg

DRUGS (4)
  1. HALDOL [Suspect]
     Indication: MENTAL DISORDER
     Dosage: UNK
     Route: 065
  2. NICOTINE [Concomitant]
     Indication: SMOKING CESSATION THERAPY
     Route: 062
  3. NICOTINE 2 MG MINT 344 [Suspect]
     Indication: SMOKING CESSATION THERAPY
     Dosage: 2 MG EVERY 3-4 HOURS
     Route: 002
     Dates: start: 20111209, end: 20111223
  4. NICOTINE 2 MG MINT 344 [Suspect]
     Dosage: 2 MG EVERY 3-4 HOURS
     Route: 002
     Dates: start: 20111226

REACTIONS (6)
  - WRONG TECHNIQUE IN DRUG USAGE PROCESS [None]
  - TONGUE DISORDER [None]
  - UNDERDOSE [None]
  - EXPIRED DRUG ADMINISTERED [None]
  - SWOLLEN TONGUE [None]
  - TOBACCO ABUSE [None]
